FAERS Safety Report 5312305-0 (Version None)
Quarter: 2007Q2

REPORT INFORMATION
  Report Type: 
  Country: None (occurrence: None)
  Receive Date: 20070430
  Receipt Date: 20060914
  Transmission Date: 20071010
  Serious: No
  Sender: FDA-Public Use
  Company Number: 2006UW18000

PATIENT
  Age: 68 Year
  Sex: Female
  Weight: 73.5 kg

DRUGS (1)
  1. NEXIUM [Suspect]
     Indication: GASTROOESOPHAGEAL REFLUX DISEASE
     Route: 048
     Dates: start: 20050901

REACTIONS (8)
  - ABDOMINAL PAIN UPPER [None]
  - CONSTIPATION [None]
  - DRY MOUTH [None]
  - HOT FLUSH [None]
  - JOINT SWELLING [None]
  - MUSCLE SPASTICITY [None]
  - NAUSEA [None]
  - THIRST [None]
